FAERS Safety Report 19288727 (Version 1)
Quarter: 2021Q2

REPORT INFORMATION
  Report Type: Spontaneous
  Country: NL (occurrence: NL)
  Receive Date: 20210522
  Receipt Date: 20210522
  Transmission Date: 20210717
  Serious: Yes (Hospitalization)
  Sender: FDA-Public Use
  Company Number: NL-ACCORD-225861

PATIENT
  Age: 34 Year
  Sex: Female
  Weight: 56.6 kg

DRUGS (6)
  1. DEXAMETHASONE. [Concomitant]
     Active Substance: DEXAMETHASONE
     Dosage: TABLET 1 DAILY 4MG
  2. PARACETAMOL [Concomitant]
     Active Substance: ACETAMINOPHEN
     Dosage: 500 MG (MILLIGRAM)
  3. MOVICOLON [Concomitant]
     Active Substance: POLYETHYLENE GLYCOL 3350\POTASSIUM CHLORIDE\SODIUM BICARBONATE\SODIUM CHLORIDE
  4. CISPLATIN. [Suspect]
     Active Substance: CISPLATIN
     Indication: CHOLANGIOCARCINOMA
     Dosage: 1 MG / MG (MILLIGRAM PER MILLIGRAM)
     Dates: start: 20210309, end: 20210309
  5. FENTANYL. [Concomitant]
     Active Substance: FENTANYL
     Dosage: 12  (MICROGRAM) PER HOUR (GENERIC + DUROGESIC)
  6. METOCLOPRAMIDE. [Concomitant]
     Active Substance: METOCLOPRAMIDE
     Dosage: 10MG TABLET 3D1 ZN

REACTIONS (3)
  - Hyperkalaemia [Not Recovered/Not Resolved]
  - Off label use [Unknown]
  - Renal tubular acidosis [Not Recovered/Not Resolved]

NARRATIVE: CASE EVENT DATE: 20210315
